FAERS Safety Report 26212375 (Version 1)
Quarter: 2025Q4

REPORT INFORMATION
  Report Type: Spontaneous
  Country: US (occurrence: US)
  Receive Date: 20251230
  Receipt Date: 20251230
  Transmission Date: 20260117
  Serious: No
  Sender: NOBELPHARMA
  Company Number: US-NPC-2025-AER-02244

PATIENT
  Sex: Female

DRUGS (11)
  1. HYFTOR [Suspect]
     Active Substance: SIROLIMUS
     Route: 061
     Dates: start: 20250402
  2. AMOXICILLIN [Concomitant]
     Active Substance: AMOXICILLIN
  3. ASPIRIN [Concomitant]
     Active Substance: ASPIRIN
  4. ATORVASTATIN [Concomitant]
     Active Substance: ATORVASTATIN
  5. BRIMONIDINE [Concomitant]
     Active Substance: BRIMONIDINE TARTRATE
  6. BRINZOLAMIDE [Concomitant]
     Active Substance: BRINZOLAMIDE
  7. VITAMIN D3 [Concomitant]
     Active Substance: CHOLECALCIFEROL
  8. FLONASE ALLERGY RELIEF [Concomitant]
     Active Substance: FLUTICASONE PROPIONATE
  9. FUROSEMIDE [Concomitant]
     Active Substance: FUROSEMIDE
  10. KETOROLAC [Concomitant]
     Active Substance: KETOROLAC TROMETHAMINE
  11. LATANOPROST [Concomitant]
     Active Substance: LATANOPROST

REACTIONS (1)
  - Nail disorder [Unknown]
